FAERS Safety Report 21810664 (Version 1)
Quarter: 2023Q1

REPORT INFORMATION
  Report Type: Report from Study
  Country: US (occurrence: US)
  Receive Date: 20230103
  Receipt Date: 20230103
  Transmission Date: 20230417
  Serious: No
  Sender: FDA-Public Use
  Company Number: US-ABBVIE-4227440

PATIENT
  Sex: Female

DRUGS (2)
  1. HUMIRA [Suspect]
     Active Substance: ADALIMUMAB
     Indication: Psoriatic arthropathy
     Route: 058
  2. HUMIRA [Suspect]
     Active Substance: ADALIMUMAB
     Indication: Psoriasis

REACTIONS (9)
  - Fatigue [Unknown]
  - Joint stiffness [Unknown]
  - Inflammation [Unknown]
  - Tendon pain [Unknown]
  - Nasal congestion [Unknown]
  - Hypoaesthesia [Unknown]
  - Arthralgia [Unknown]
  - Condition aggravated [Unknown]
  - Gait disturbance [Unknown]
